FAERS Safety Report 18366706 (Version 1)
Quarter: 2020Q4

REPORT INFORMATION
  Report Type: Spontaneous
  Country: US (occurrence: US)
  Receive Date: 20201009
  Receipt Date: 20201009
  Transmission Date: 20210114
  Serious: Yes (Other)
  Sender: FDA-Public Use
  Company Number: US-PFIZER INC-2020372804

PATIENT
  Age: 53 Year
  Sex: Male

DRUGS (1)
  1. ZIRABEV [Suspect]
     Active Substance: BEVACIZUMAB-BVZR
     Dosage: 5 MG, EVERY 4 WEEKS

REACTIONS (4)
  - Pancreatic carcinoma [Unknown]
  - Hepatic cancer [Unknown]
  - Colon cancer [Unknown]
  - Off label use [Unknown]
